FAERS Safety Report 20076591 (Version 1)
Quarter: 2021Q4

REPORT INFORMATION
  Report Type: Spontaneous
  Country: US (occurrence: US)
  Receive Date: 20211116
  Receipt Date: 20211116
  Transmission Date: 20220303
  Serious: Yes (Other)
  Sender: FDA-Public Use
  Company Number: US-AMGEN-USASP2021178201

PATIENT

DRUGS (4)
  1. EVOLOCUMAB [Suspect]
     Active Substance: EVOLOCUMAB
     Indication: Product used for unknown indication
     Dosage: UNK
     Route: 065
  2. TACROLIMUS [Concomitant]
     Active Substance: TACROLIMUS
  3. CYCLOSPORINE [Concomitant]
     Active Substance: CYCLOSPORINE
  4. SIROLIMUS [Concomitant]
     Active Substance: SIROLIMUS

REACTIONS (2)
  - Myocardial infarction [Unknown]
  - Coronary artery occlusion [Unknown]
